FAERS Safety Report 7497364-1 (Version None)
Quarter: 2011Q2

REPORT INFORMATION
  Report Type: 
  Country: None (occurrence: None)
  Receive Date: 20110523
  Receipt Date: 20110513
  Transmission Date: 20111010
  Serious: Yes (Other)
  Sender: FDA-Public Use
  Company Number: FR-ASTRAZENECA-2011SE29528

PATIENT
  Age: 83 Year
  Sex: Female

DRUGS (10)
  1. SPIRIVA [Concomitant]
  2. ATORVASTATIN [Concomitant]
  3. LEVEMIR [Concomitant]
  4. PANTOPRAZOLE [Concomitant]
  5. ASPIRIN [Concomitant]
  6. ATARAX [Concomitant]
  7. DIFFU-K [Concomitant]
  8. LASIX [Concomitant]
  9. PROCORALAN [Concomitant]
  10. SYMBICORT [Suspect]
     Indication: CHRONIC OBSTRUCTIVE PULMONARY DISEASE
     Dosage: 320/9 UG ONE INHALTION TWO TIMES A DAY
     Route: 055

REACTIONS (1)
  - ELECTROCARDIOGRAM QT PROLONGED [None]
